FAERS Safety Report 10994315 (Version 1)
Quarter: 2015Q2

REPORT INFORMATION
  Report Type: Spontaneous
  Country: US (occurrence: None)
  Receive Date: 20150403
  Receipt Date: 20150403
  Transmission Date: 20150821
  Serious: Yes (Hospitalization)
  Sender: FDA-Public Use
  Company Number: 2015COV00065

PATIENT
  Age: 57 Year
  Sex: Male
  Weight: 97.5 kg

DRUGS (16)
  1. GABAPENTIN. [Concomitant]
     Active Substance: GABAPENTIN
  2. FLUTICASONE [Concomitant]
     Active Substance: FLUTICASONE\FLUTICASONE PROPIONATE
  3. MULTIVITAMIN (ASCORBIC ACID WITH ERGOCALCIFEROL, FOLIC ACID, RETINOL, AND VITAMIN B) [Concomitant]
  4. HUMIRA [Suspect]
     Active Substance: ADALIMUMAB
     Indication: RHEUMATOID ARTHRITIS
     Dosage: 40 MG, 2X/MONTH?
     Dates: start: 2006
  5. METFORMIN [Suspect]
     Active Substance: METFORMIN HYDROCHLORIDE
     Indication: DIABETES MELLITUS
  6. CALCIUM CITRATE PLUS D (CALCIUM CITRATE WITH COLECALCIFEROL0 [Concomitant]
  7. PLAQUENIL [Suspect]
     Active Substance: HYDROXYCHLOROQUINE SULFATE
     Indication: RHEUMATOID ARTHRITIS
     Dates: end: 2014
  8. BENICAR [Concomitant]
     Active Substance: OLMESARTAN MEDOXOMIL
  9. INSULIN [Concomitant]
     Active Substance: INSULIN NOS
  10. HYDROCHLOROTHIAZIDE. [Concomitant]
     Active Substance: HYDROCHLOROTHIAZIDE
  11. METHOTREXATE [Suspect]
     Active Substance: METHOTREXATE
  12. METOPROLOL [Concomitant]
     Active Substance: METOPROLOL
  13. NITROGLYCERIN (GLYCERYL TRINITRATE) [Concomitant]
     Active Substance: NITROGLYCERIN
  14. OMEPRAZOLE. [Concomitant]
     Active Substance: OMEPRAZOLE
  15. HYDROXYZINE [Concomitant]
     Active Substance: HYDROXYZINE\HYDROXYZINE HYDROCHLORIDE
  16. ATORVASTATIN [Concomitant]
     Active Substance: ATORVASTATIN

REACTIONS (7)
  - Skin discolouration [None]
  - Arterial occlusive disease [None]
  - Hyperchlorhydria [None]
  - Flatulence [None]
  - Chest pain [None]
  - Arteriosclerosis [None]
  - Drug effect decreased [None]

NARRATIVE: CASE EVENT DATE: 201501
